FAERS Safety Report 24201614 (Version 1)
Quarter: 2024Q3

REPORT INFORMATION
  Report Type: Spontaneous
  Country: US (occurrence: None)
  Receive Date: 20240811
  Receipt Date: 20240811
  Transmission Date: 20241016
  Serious: Yes (Hospitalization, Disabling, Other)
  Sender: Public
  Company Number: None

PATIENT
  Age: 36 Year
  Sex: Female

DRUGS (13)
  1. CIPROFLOXACIN [Suspect]
     Active Substance: CIPROFLOXACIN
     Indication: Urinary tract infection
     Dates: start: 20150123, end: 20150129
  2. CYCLOBENZAPRINE [Concomitant]
     Active Substance: CYCLOBENZAPRINE
  3. SKELAXIN [Concomitant]
     Active Substance: METAXALONE
  4. 5% Topical Lidocaine [Concomitant]
  5. ketamine /Gabba / Baclofen topical compound [Concomitant]
  6. diazepam suppository [Concomitant]
  7. GABAPENTIN [Concomitant]
     Active Substance: GABAPENTIN
  8. AMITRIPTYLINE [Concomitant]
     Active Substance: AMITRIPTYLINE
  9. LYRICA [Suspect]
     Active Substance: PREGABALIN
  10. metaxalone 20% [Concomitant]
  11. doxepin HCI [Concomitant]
  12. FLUCONAZOLE [Concomitant]
     Active Substance: FLUCONAZOLE
  13. MACROBIND (NITROFURANTOIN) [Concomitant]

REACTIONS (19)
  - Pelvic pain [None]
  - Pain [None]
  - Infection [None]
  - Gastrointestinal disorder [None]
  - Fibromyalgia [None]
  - Muscle spasms [None]
  - Trismus [None]
  - Muscle rupture [None]
  - Spinal disorder [None]
  - Gait disturbance [None]
  - Pain [None]
  - Neuralgia [None]
  - Tendon disorder [None]
  - Anxiety [None]
  - Post-traumatic stress disorder [None]
  - Musculoskeletal disorder [None]
  - Cystitis interstitial [None]
  - Dermatitis allergic [None]
  - Injury [None]

NARRATIVE: CASE EVENT DATE: 20150202
